FAERS Safety Report 14060869 (Version 4)
Quarter: 2018Q1

REPORT INFORMATION
  Report Type: Spontaneous
  Country: AU (occurrence: AU)
  Receive Date: 20171009
  Receipt Date: 20180308
  Transmission Date: 20180508
  Serious: Yes (Death, Other)
  Sender: FDA-Public Use
  Company Number: PHHY2017AU147590

PATIENT
  Age: 67 Year
  Sex: Female

DRUGS (11)
  1. AMSACRINE [Suspect]
     Active Substance: AMSACRINE
     Indication: ACUTE MYELOID LEUKAEMIA
     Dosage: 100 MG/M2, QD (DAY 1-3 )
     Route: 065
     Dates: start: 20101001
  2. VORICONAZOLE. [Suspect]
     Active Substance: VORICONAZOLE
     Dosage: 250 MG, BID
     Route: 065
     Dates: start: 20101001
  3. AZACITIDINE. [Suspect]
     Active Substance: AZACITIDINE
     Indication: ACUTE MYELOID LEUKAEMIA
     Dosage: UNK
     Route: 065
     Dates: start: 20101213
  4. IDARUBICIN [Suspect]
     Active Substance: IDARUBICIN
     Indication: ACUTE MYELOID LEUKAEMIA
     Dosage: 12 MG/M2, QD (DAY 1 - 3)
     Route: 042
     Dates: start: 20100822
  5. VORICONAZOLE. [Suspect]
     Active Substance: VORICONAZOLE
     Dosage: 500 MG, BID
     Route: 065
     Dates: start: 20101213
  6. CYTARABINE. [Suspect]
     Active Substance: CYTARABINE
     Dosage: 2000 MG/M2, QD (DAY 1-5)
     Route: 042
     Dates: start: 20101001
  7. FLUDARABINE [Suspect]
     Active Substance: FLUDARABINE PHOSPHATE
     Indication: ACUTE MYELOID LEUKAEMIA
     Dosage: 30 MG/M2, QD (DAY 1-5)
     Route: 042
     Dates: start: 20101001
  8. VORICONAZOLE. [Suspect]
     Active Substance: VORICONAZOLE
     Indication: PRODUCT USED FOR UNKNOWN INDICATION
     Dosage: 200 MG, BID
     Route: 065
     Dates: start: 20100822
  9. G-CSF [Suspect]
     Active Substance: GRANULOCYTE COLONY-STIMULATING FACTOR NOS
     Indication: ACUTE MYELOID LEUKAEMIA
     Dosage: 300 UG, QD (DAY 0-6)
     Route: 058
     Dates: start: 20101001
  10. CYTARABINE. [Suspect]
     Active Substance: CYTARABINE
     Indication: ACUTE MYELOID LEUKAEMIA
     Dosage: 100 MG/M2, QD (DAY 1 - 7 )
     Route: 042
     Dates: start: 20100822
  11. EVEROLIMUS. [Suspect]
     Active Substance: EVEROLIMUS
     Indication: ACUTE MYELOID LEUKAEMIA
     Dosage: UNK
     Route: 065
     Dates: start: 20101213

REACTIONS (2)
  - Death [Fatal]
  - Acute myeloid leukaemia recurrent [Not Recovered/Not Resolved]

NARRATIVE: CASE EVENT DATE: 20110526
